FAERS Safety Report 8690825 (Version 4)
Quarter: 2014Q1

REPORT INFORMATION
  Report Type: Spontaneous
  Country: US (occurrence: US)
  Receive Date: 20120729
  Receipt Date: 20140127
  Transmission Date: 20141002
  Serious: Yes (Hospitalization, Disabling, Other)
  Sender: FDA-Public Use
  Company Number: US-009507513-1207USA006528

PATIENT
  Sex: Female
  Weight: 73.92 kg

DRUGS (12)
  1. FOSAMAX [Suspect]
     Indication: OSTEOPENIA
     Dosage: 70 MG, QW
     Route: 048
     Dates: start: 20040409, end: 20100709
  2. FOSAMAX [Suspect]
     Indication: OSTEOPENIA
     Route: 048
  3. ALENDRONATE SODIUM [Suspect]
     Indication: OSTEOPENIA
     Dosage: 70 MG, QW
     Route: 048
     Dates: start: 200901
  4. BONIVA [Suspect]
     Indication: OSTEOPENIA
     Dosage: 150 MG, UNK
     Route: 048
     Dates: start: 200801, end: 200901
  5. ASCORBIC ACID [Concomitant]
     Indication: PRODUCT USED FOR UNKNOWN INDICATION
     Dosage: 500 MG, UNK
     Dates: start: 1996
  6. VITAMIN D (UNSPECIFIED) [Concomitant]
     Indication: PRODUCT USED FOR UNKNOWN INDICATION
     Dosage: 100 MG, UNK
     Dates: start: 1996
  7. FOLIC ACID [Concomitant]
     Indication: PRODUCT USED FOR UNKNOWN INDICATION
     Dosage: 1500 MG, UNK
     Dates: start: 1996
  8. GLUCOSAMINE [Concomitant]
     Indication: PRODUCT USED FOR UNKNOWN INDICATION
     Dosage: 1500 MG, UNK
     Dates: start: 1996
  9. CITRUCEL (METHYLCELLULOSE) [Concomitant]
     Indication: PRODUCT USED FOR UNKNOWN INDICATION
     Dosage: 500 MG, UNK
     Dates: start: 1996
  10. CORTICOSTEROIDS (UNSPECIFIED) [Concomitant]
     Indication: PRODUCT USED FOR UNKNOWN INDICATION
     Dosage: UNK, PRN
     Dates: start: 2000, end: 20100729
  11. NASONEX [Concomitant]
     Indication: HYPERSENSITIVITY
     Dosage: 50 MICROGRAM, 3 TIMES TOTAL
     Dates: start: 20000413
  12. ALLEGRA [Concomitant]
     Indication: HYPERSENSITIVITY
     Dosage: 60 MG, UNK
     Dates: start: 20001213

REACTIONS (38)
  - Intramedullary rod insertion [Recovering/Resolving]
  - Fall [Unknown]
  - Renal stone removal [Unknown]
  - Femur fracture [Recovered/Resolved with Sequelae]
  - Impaired healing [Recovered/Resolved]
  - Bone lesion excision [Unknown]
  - Low turnover osteopathy [Unknown]
  - Renal pain [Unknown]
  - Intervertebral disc degeneration [Unknown]
  - Chondropathy [Unknown]
  - Rib fracture [Unknown]
  - Osteoporosis [Recovering/Resolving]
  - Osteoarthritis [Unknown]
  - Bursitis [Not Recovered/Not Resolved]
  - Bunion operation [Unknown]
  - Mitral valve prolapse [Unknown]
  - Hypoglycaemia [Unknown]
  - Irritable bowel syndrome [Unknown]
  - Muscle atrophy [Unknown]
  - Fracture nonunion [Recovered/Resolved]
  - Toe operation [Unknown]
  - Vitamin D deficiency [Unknown]
  - Spinal osteoarthritis [Unknown]
  - Anaemia [Unknown]
  - Hepatitis B [Unknown]
  - Nephrolithiasis [Unknown]
  - Cystopexy [Unknown]
  - Diverticulum [Unknown]
  - Umbilical hernia repair [Unknown]
  - Carpal tunnel decompression [Unknown]
  - Tendon sheath incision [Unknown]
  - Cataract operation [Unknown]
  - Scar excision [Unknown]
  - Tendon sheath incision [Unknown]
  - Cataract operation [Unknown]
  - Bursitis [Recovered/Resolved]
  - Sinus disorder [Unknown]
  - Pollakiuria [Unknown]
